FAERS Safety Report 5843061-5 (Version None)
Quarter: 2008Q3

REPORT INFORMATION
  Report Type: 
  Country: None (occurrence: None)
  Receive Date: 20080808
  Receipt Date: 20080724
  Transmission Date: 20090109
  Serious: Yes (Life-Threatening, Hospitalization)
  Sender: FDA-Public Use
  Company Number: 20080216 /

PATIENT
  Age: 65 Year
  Sex: Female
  Weight: 94.8018 kg

DRUGS (17)
  1. HYDRALAZINE HCL [Suspect]
     Indication: HYPERTENSIVE CRISIS
     Dosage: 10 MG X 1 INTRAVENOUS
     Route: 042
     Dates: start: 20080311
  2. SU011248 [Suspect]
     Indication: RENAL CELL CARCINOMA
     Dosage: 37.5 MG X 1 PER DAYS ORAL
     Route: 048
     Dates: start: 20071121
  3. GEMCITABINE [Suspect]
     Indication: RENAL CELL CARCINOMA
     Dosage: DAYS 1-8 INTRAVENOUS
     Route: 042
     Dates: start: 20071120
  4. ASPIRIN [Concomitant]
  5. LIPITOR [Concomitant]
  6. CITALOPRAM HYDROBROMIDE [Concomitant]
  7. LOPERAMIDE HCL [Concomitant]
  8. INSULIN [Concomitant]
  9. METFORMIN [Concomitant]
  10. METOPROLOL TARTRATE [Concomitant]
  11. LISINOPRIL [Concomitant]
  12. PRILOSEC [Concomitant]
  13. COMPAZINE [Concomitant]
  14. ASCORBIC ACID [Concomitant]
  15. VITAMIN D [Concomitant]
  16. EXCEDRIN MIGRAINE (ACETYLSALICYLIC ACID/CAFFEINE) [Concomitant]
  17. ARANESP [Concomitant]

REACTIONS (4)
  - CHILLS [None]
  - FLUSHING [None]
  - HYPERTENSIVE CRISIS [None]
  - SENSATION OF HEAVINESS [None]
